FAERS Safety Report 21098889 (Version 1)
Quarter: 2022Q3

REPORT INFORMATION
  Report Type: Other
  Country: US (occurrence: None)
  Receive Date: 20220719
  Receipt Date: 20220719
  Transmission Date: 20221027
  Serious: Yes (Hospitalization)
  Sender: FDA-Public Use
  Company Number: US-ROCHE-3139317

PATIENT
  Sex: Female

DRUGS (2)
  1. XELODA [Suspect]
     Active Substance: CAPECITABINE
     Indication: Breast cancer metastatic
     Dosage: TAKE FOUR 500MG TABLETS ALONG WITH ONE 150MG TABLET BY MOUTH TWICE A DAY FOR 2 WEEK(S) ON, 1 WEEK(S)
     Route: 048
  2. XELODA [Suspect]
     Active Substance: CAPECITABINE
     Indication: Triple negative breast cancer
     Dosage: TAKE ONE 150MG TABLET ALONG WITH FOUR 500MG TABLETS BY MOUTH TWICE A DAY FOR 2 WEEK(S) ON, 1 WEEK(S)
     Route: 048

REACTIONS (1)
  - Cerebrovascular accident [Unknown]
